FAERS Safety Report 25810487 (Version 1)
Quarter: 2025Q3

REPORT INFORMATION
  Report Type: Spontaneous
  Country: GB (occurrence: GB)
  Receive Date: 20250917
  Receipt Date: 20250917
  Transmission Date: 20251021
  Serious: Yes (Hospitalization)
  Sender: MERCK SHARP & DOHME LLC
  Company Number: GB-009507513-2315252

PATIENT
  Age: 73 Year
  Sex: Female

DRUGS (2)
  1. PEMBROLIZUMAB [Suspect]
     Active Substance: PEMBROLIZUMAB
     Indication: Endometrial cancer metastatic
  2. LENVATINIB [Concomitant]
     Active Substance: LENVATINIB
     Indication: Endometrial cancer metastatic
     Route: 048

REACTIONS (3)
  - Hepatotoxicity [Recovered/Resolved with Sequelae]
  - Blood phosphorus decreased [Unknown]
  - Hepatitis [Unknown]
